FAERS Safety Report 25322758 (Version 1)
Quarter: 2025Q2

REPORT INFORMATION
  Report Type: Spontaneous
  Country: NL (occurrence: NL)
  Receive Date: 20250516
  Receipt Date: 20250516
  Transmission Date: 20250716
  Serious: Yes (Death)
  Sender: ORGANON
  Company Number: NL-LABORATORIOS LICONSA S.A.-2504NL03474

PATIENT
  Age: 22 Year
  Sex: Male

DRUGS (8)
  1. MIRTAZAPINE [Suspect]
     Active Substance: MIRTAZAPINE
  2. RIZATRIPTAN BENZOATE [Suspect]
     Active Substance: RIZATRIPTAN BENZOATE
  3. OMEPRAZOLE [Suspect]
     Active Substance: OMEPRAZOLE
     Indication: Product used for unknown indication
  4. CITALOPRAM [Suspect]
     Active Substance: CITALOPRAM
  5. TRAMADOL [Suspect]
     Active Substance: TRAMADOL
  6. SUMATRIPTAN [Suspect]
     Active Substance: SUMATRIPTAN
  7. METOCLOPRAMIDE [Suspect]
     Active Substance: METOCLOPRAMIDE
  8. XANAX [Suspect]
     Active Substance: ALPRAZOLAM

REACTIONS (1)
  - Death [Fatal]

NARRATIVE: CASE EVENT DATE: 20230101
